FAERS Safety Report 25282699 (Version 1)
Quarter: 2025Q2

REPORT INFORMATION
  Report Type: Spontaneous
  Country: US (occurrence: US)
  Receive Date: 20250508
  Receipt Date: 20250508
  Transmission Date: 20250717
  Serious: Yes (Hospitalization, Other)
  Sender: NEXUS PHARMACEUTICALS
  Company Number: US-Nexus Pharma-000389

PATIENT
  Age: 70 Year
  Sex: Male

DRUGS (1)
  1. TIROFIBAN HYDROCHLORIDE [Suspect]
     Active Substance: TIROFIBAN HYDROCHLORIDE
     Indication: Anticoagulant therapy
     Dates: start: 202308

REACTIONS (2)
  - Thrombocytopenia [Recovered/Resolved]
  - Anaemia [Unknown]

NARRATIVE: CASE EVENT DATE: 20230801
